FAERS Safety Report 11809993 (Version 5)
Quarter: 2016Q2

REPORT INFORMATION
  Report Type: Spontaneous
  Country: JP (occurrence: JP)
  Receive Date: 20151208
  Receipt Date: 20160622
  Transmission Date: 20160815
  Serious: Yes (Death, Other)
  Sender: FDA-Public Use
  Company Number: JP-009507513-1512JPN002849

PATIENT
  Age: 85 Year
  Sex: Female

DRUGS (4)
  1. WARFARIN POTASSIUM [Interacting]
     Active Substance: WARFARIN POTASSIUM
     Dosage: 2.5 MG PER DAY
     Route: 048
  2. CISPLATIN. [Concomitant]
     Active Substance: CISPLATIN
     Dosage: 10 MG PER DAY, FOR 5 DAYS
  3. FOSAPREPITANT DIMEGLUMINE [Suspect]
     Active Substance: FOSAPREPITANT DIMEGLUMINE
     Indication: PROPHYLAXIS OF NAUSEA AND VOMITING
     Dosage: UNKNOWN
     Route: 041
  4. WARFARIN POTASSIUM [Interacting]
     Active Substance: WARFARIN POTASSIUM
     Indication: PRODUCT USED FOR UNKNOWN INDICATION
     Dosage: 2.5 MG PER DAY
     Route: 048

REACTIONS (5)
  - International normalised ratio increased [Unknown]
  - Death [Fatal]
  - Drug interaction [Unknown]
  - Cerebral infarction [Unknown]
  - Cardiac failure congestive [Unknown]
